FAERS Safety Report 8977899 (Version 4)
Quarter: 2013Q3

REPORT INFORMATION
  Report Type: Report from Study
  Country: JP (occurrence: JP)
  Receive Date: 20121219
  Receipt Date: 20130926
  Transmission Date: 20140515
  Serious: Yes (Other)
  Sender: FDA-Public Use
  Company Number: JP-VERTEX PHARMACEUTICALS INC.-2012-026287

PATIENT
  Age: 59 Year
  Sex: Male

DRUGS (5)
  1. VX-950 (TELAPREVIR) [Suspect]
     Indication: CHRONIC HEPATITIS C
     Dosage: 1500 MG, QD
     Route: 048
     Dates: start: 20120920, end: 20121122
  2. REBETOL [Suspect]
     Indication: CHRONIC HEPATITIS C
     Dosage: 400 MG, QD
     Route: 048
     Dates: start: 20120920, end: 20121122
  3. PEGINTRON [Suspect]
     Indication: CHRONIC HEPATITIS C
     Dosage: 100 ?G, QW
     Route: 058
     Dates: start: 20120920, end: 20121115
  4. AMLODIPINE [Concomitant]
     Dosage: 5 MG, QD
     Route: 048
     Dates: end: 20120924
  5. NORVASC [Concomitant]
     Dosage: 5 MG, QD
     Route: 048
     Dates: start: 20120925

REACTIONS (3)
  - White blood cell count decreased [Recovered/Resolved]
  - Retinal haemorrhage [Recovered/Resolved]
  - Retinal exudates [Recovered/Resolved]
